FAERS Safety Report 5403539-5 (Version None)
Quarter: 2007Q3

REPORT INFORMATION
  Report Type: 
  Country: None (occurrence: None)
  Receive Date: 20070730
  Receipt Date: 20070716
  Transmission Date: 20080115
  Serious: Yes (Life-Threatening, Other)
  Sender: FDA-Public Use
  Company Number: RENA-12232

PATIENT
  Age: 42 Year
  Sex: Male

DRUGS (10)
  1. RENAGEL [Suspect]
     Indication: CALCIUM DEFICIENCY
     Dosage: 0.8 G TID PO
     Route: 048
     Dates: start: 20070406
  2. WARFARIN SODIUM [Suspect]
     Indication: DRUG USE FOR UNKNOWN INDICATION
     Dosage: 49 MG PO
     Route: 048
  3. WARFARIN SODIUM [Suspect]
     Indication: DRUG USE FOR UNKNOWN INDICATION
     Dosage: 30 MG QWK PO
     Route: 048
  4. AMLODIPINE [Concomitant]
  5. ATENOLOL [Concomitant]
  6. FRUSEMIDE [Concomitant]
  7. LISINOPRIL [Concomitant]
  8. SIMVASTATIN [Concomitant]
  9. SODIUM BICARBONATE [Concomitant]
  10. EPO INJECTIONS [Concomitant]

REACTIONS (6)
  - CONTUSION [None]
  - DRUG INTERACTION [None]
  - EPISTAXIS [None]
  - HAEMATURIA [None]
  - INTERNATIONAL NORMALISED RATIO INCREASED [None]
  - MELAENA [None]
